FAERS Safety Report 6955885-1 (Version None)
Quarter: 2010Q3

REPORT INFORMATION
  Report Type: 
  Country: None (occurrence: None)
  Receive Date: 20100826
  Receipt Date: 20100826
  Transmission Date: 20110219
  Serious: Yes (Life-Threatening, Other)
  Sender: FDA-Public Use
  Company Number: None

PATIENT
  Age: 78 Year
  Sex: Female
  Weight: 72.5755 kg

DRUGS (1)
  1. CLINDAMYCIN 150MG. WALMART PHARMACY [Suspect]
     Indication: TOOTH INFECTION
     Dosage: 1 X3 A DAY PO
     Route: 048
     Dates: start: 20100706, end: 20100713

REACTIONS (1)
  - CLOSTRIDIUM DIFFICILE COLITIS [None]
